FAERS Safety Report 16828791 (Version 1)
Quarter: 2019Q3

REPORT INFORMATION
  Report Type: Spontaneous
  Country: US (occurrence: US)
  Receive Date: 20190919
  Receipt Date: 20190919
  Transmission Date: 20191005
  Serious: Yes (Death)
  Sender: FDA-Public Use
  Company Number: US-TEVA-2019-US-1108867

PATIENT
  Age: 84 Year
  Sex: Male

DRUGS (1)
  1. CLONAZEPAM ORALLY DISINTEGRATING TABLETS [Suspect]
     Active Substance: CLONAZEPAM
     Indication: ANXIETY
     Dosage: .5 MILLIGRAM DAILY;
     Route: 048

REACTIONS (1)
  - Death [Fatal]
